APPROVED DRUG PRODUCT: METHYLTESTOSTERONE
Active Ingredient: METHYLTESTOSTERONE
Strength: 10MG
Dosage Form/Route: TABLET;ORAL
Application: A087092 | Product #001
Applicant: LANNETT CO INC
Approved: Nov 5, 1982 | RLD: No | RS: No | Type: DISCN